FAERS Safety Report 9786374 (Version 1)
Quarter: 2013Q4

REPORT INFORMATION
  Report Type: Spontaneous
  Country: GB (occurrence: None)
  Receive Date: 20131224
  Receipt Date: 20131224
  Transmission Date: 20140711
  Serious: Yes (Other)
  Sender: FDA-Public Use
  Company Number: ABR_01365_2013

PATIENT
  Age: 50 Year
  Sex: Male

DRUGS (1)
  1. CARMUSTINE [Suspect]
     Indication: GLIOMA
     Dosage: (3 WAFERS)

REACTIONS (2)
  - Subdural haematoma [None]
  - Post procedural infection [None]
